FAERS Safety Report 23867458 (Version 1)
Quarter: 2024Q2

REPORT INFORMATION
  Report Type: Report from Study
  Country: JP (occurrence: JP)
  Receive Date: 20240517
  Receipt Date: 20240517
  Transmission Date: 20240716
  Serious: Yes (Life-Threatening, Hospitalization, Other)
  Sender: FDA-Public Use
  Company Number: JP-JNJFOC-20240544928

PATIENT
  Age: 58 Year
  Sex: Female
  Weight: 60 kg

DRUGS (13)
  1. PALIPERIDONE PALMITATE [Suspect]
     Active Substance: PALIPERIDONE PALMITATE
     Indication: Schizophrenia
     Dosage: RIGHT GLUTEAL MUSCLE
     Route: 030
     Dates: start: 20221025, end: 20221025
  2. PALIPERIDONE PALMITATE [Suspect]
     Active Substance: PALIPERIDONE PALMITATE
     Dosage: LEFT GLUTEAL MUSCLE
     Route: 030
     Dates: start: 20230119, end: 20230119
  3. PALIPERIDONE PALMITATE [Suspect]
     Active Substance: PALIPERIDONE PALMITATE
     Dosage: RIGHT GLUTEAL MUSCLE
     Route: 030
     Dates: start: 20230411, end: 20230411
  4. PALIPERIDONE PALMITATE [Suspect]
     Active Substance: PALIPERIDONE PALMITATE
     Dosage: LEFT GLUTEAL MUSCLE
     Route: 030
     Dates: start: 20230704, end: 20230704
  5. PALIPERIDONE PALMITATE [Concomitant]
     Active Substance: PALIPERIDONE PALMITATE
     Indication: Schizophrenia
     Route: 030
     Dates: start: 20220705, end: 20220705
  6. PALIPERIDONE PALMITATE [Concomitant]
     Active Substance: PALIPERIDONE PALMITATE
     Indication: Schizophrenia
     Route: 030
     Dates: start: 20220802, end: 20220802
  7. PALIPERIDONE PALMITATE [Concomitant]
     Active Substance: PALIPERIDONE PALMITATE
     Indication: Schizophrenia
     Route: 030
     Dates: start: 20220830, end: 20220830
  8. PALIPERIDONE PALMITATE [Concomitant]
     Active Substance: PALIPERIDONE PALMITATE
     Indication: Schizophrenia
     Route: 030
     Dates: start: 20220927, end: 20220927
  9. FLUNITRAZEPAM [Concomitant]
     Active Substance: FLUNITRAZEPAM
     Indication: Insomnia
     Route: 048
     Dates: end: 20230213
  10. FLUNITRAZEPAM [Concomitant]
     Active Substance: FLUNITRAZEPAM
     Indication: Insomnia
     Route: 048
     Dates: start: 20230214, end: 20230925
  11. BIPERIDEN HYDROCHLORIDE [Concomitant]
     Active Substance: BIPERIDEN HYDROCHLORIDE
     Indication: Parkinsonism
     Route: 048
     Dates: end: 20230925
  12. DIAZEPAM [Concomitant]
     Active Substance: DIAZEPAM
     Indication: Parkinsonism
     Route: 048
     Dates: start: 20221122, end: 20230925
  13. VALBENAZINE [Concomitant]
     Active Substance: VALBENAZINE
     Indication: Tardive dyskinesia
     Route: 048
     Dates: start: 20230606

REACTIONS (2)
  - Pneumonia [Recovering/Resolving]
  - Rhabdomyolysis [Recovering/Resolving]

NARRATIVE: CASE EVENT DATE: 20230926
